FAERS Safety Report 11891633 (Version 1)
Quarter: 2016Q1

REPORT INFORMATION
  Report Type: Spontaneous
  Country: US (occurrence: None)
  Receive Date: 20160105
  Receipt Date: 20160105
  Transmission Date: 20160526
  Serious: Yes (Disabling)
  Sender: FDA-Public Use
  Company Number: None

PATIENT
  Age: 40 Year
  Sex: Female
  Weight: 63.5 kg

DRUGS (2)
  1. ASPIRIN. [Concomitant]
     Active Substance: ASPIRIN
  2. VYVANSE [Suspect]
     Active Substance: LISDEXAMFETAMINE DIMESYLATE
     Dosage: 1 PILL
     Route: 048

REACTIONS (6)
  - Wound secretion [None]
  - Madarosis [None]
  - Skin ulcer [None]
  - Skin swelling [None]
  - Hair disorder [None]
  - Skin disorder [None]

NARRATIVE: CASE EVENT DATE: 20120601
